FAERS Safety Report 16535896 (Version 2)
Quarter: 2024Q1

REPORT INFORMATION
  Report Type: Report from Study
  Country: GB (occurrence: GB)
  Receive Date: 20190705
  Receipt Date: 20240326
  Transmission Date: 20240410
  Serious: Yes (Hospitalization)
  Sender: FDA-Public Use
  Company Number: PHHY2019GB155040

PATIENT
  Sex: Female
  Weight: 81.6 kg

DRUGS (1)
  1. COSENTYX [Suspect]
     Active Substance: SECUKINUMAB
     Indication: Psoriasis
     Dosage: 300 MG,
     Route: 065
     Dates: start: 20160329

REACTIONS (4)
  - Large intestine infection [Recovered/Resolved]
  - Food poisoning [Recovered/Resolved]
  - Colitis [Recovered/Resolved]
  - Inflammation [Recovered/Resolved]

NARRATIVE: CASE EVENT DATE: 20181015
